FAERS Safety Report 7712371-9 (Version None)
Quarter: 2011Q3

REPORT INFORMATION
  Report Type: 
  Country: None (occurrence: None)
  Receive Date: 20110823
  Receipt Date: 20110809
  Transmission Date: 20111222
  Serious: Yes (Hospitalization)
  Sender: FDA-Public Use
  Company Number: 7076064

PATIENT
  Age: 65 Year
  Sex: Female

DRUGS (17)
  1. TAVANIC (LEVOFLOXACIN) (500 MG) (LEVOFLOXACIN) [Concomitant]
  2. INIPOMP (PANTOPRAZOLE) (40 MG) (PANTOPRAZOLE) [Concomitant]
  3. IXPRIM (ULTRACET) (TRAMADOL, PARACETAMOL) [Concomitant]
  4. CLOPDIOGREL (CLOPIDOGREL) (CLOPIDOGREL) [Concomitant]
  5. PROCORALAN (IVABRADINE HYDROCHLIORIDE) (5 MG) (IVABRADINE) [Concomitant]
  6. INSULIN (INSULIN) (INSULIN) [Concomitant]
  7. CARDENSIEL 1.25 MG (BISOPROLOL FUMARATE) (BISOPROLOL HEMIFUMARATE) [Concomitant]
  8. STABLON (TIANEPTINE) (TIANEPTINE) [Concomitant]
  9. KAYEXALATE [Suspect]
     Indication: PRODUCT USED FOR UNKNOWN INDICATION
     Dosage: (1 DF,4 IN 1 WK) (PUNCTUALLY)
  10. CALCIUM CARBONATE [Suspect]
     Indication: PRODUCT USED FOR UNKNOWN INDICATION
     Dosage: 4 DF (2 DF,IN THE MORNING AND IN THE EVENING)
  11. LEVOTHYROXINE SODIUM [Suspect]
     Indication: THYROIDECTOMY
  12. LASILIX (FUROSEMIDE) (FUROSEIMDE) [Concomitant]
  13. LEXOMIL (BROMAZEPAM) (BROMAZEPAM) [Concomitant]
  14. CORDARONE [Suspect]
     Indication: CARDIAC DISORDER
     Dates: start: 20110501
  15. FOSRENOL [Suspect]
     Indication: PRODUCT USED FOR UNKNOWN INDICATION
     Dosage: 3 GM (1 GM,IN THE MORNING, MIDDAY, IN THE EVENING)
  16. FUCIDINE (FUSIDIC ACID) (250 MG) (FUSIDATE SODIUM) [Concomitant]
  17. TAHOR (ATORVASTATIN CALCIUM) (10 MG, TABLET) (ATORVASTATIN) [Concomitant]

REACTIONS (8)
  - GENERAL PHYSICAL CONDITION ABNORMAL [None]
  - BLOOD THYROID STIMULATING HORMONE INCREASED [None]
  - CARDIAC DISORDER [None]
  - HYPERKALAEMIA [None]
  - ASTHENIA [None]
  - DRUG EFFECT DECREASED [None]
  - DRUG INTERACTION [None]
  - CONDITION AGGRAVATED [None]
